FAERS Safety Report 11589875 (Version 1)
Quarter: 2015Q4

REPORT INFORMATION
  Report Type: Spontaneous
  Country: IT (occurrence: IT)
  Receive Date: 20151002
  Receipt Date: 20151002
  Transmission Date: 20160304
  Serious: Yes (Hospitalization)
  Sender: FDA-Public Use
  Company Number: IT-B. BRAUN MEDICAL INC.-1042500

PATIENT
  Age: 66 Year
  Sex: Male

DRUGS (9)
  1. INDERAL [Concomitant]
     Active Substance: PROPRANOLOL HYDROCHLORIDE
  2. TRIATEC [Concomitant]
     Active Substance: RAMIPRIL
     Route: 048
  3. ZYLORIC [Concomitant]
     Active Substance: ALLOPURINOL
     Route: 048
  4. METRONIDAZOLE. [Suspect]
     Active Substance: METRONIDAZOLE
     Indication: BRAIN ABSCESS
     Route: 042
     Dates: start: 20150828, end: 20150917
  5. LASIX [Concomitant]
     Active Substance: FUROSEMIDE
     Route: 048
  6. PANTORC [Concomitant]
     Active Substance: PANTOPRAZOLE SODIUM
     Route: 048
  7. LUVION [Concomitant]
     Active Substance: CANRENONE
     Route: 048
  8. ROCEPHIN [Concomitant]
     Active Substance: CEFTRIAXONE SODIUM
     Route: 043
  9. KEPPRA [Concomitant]
     Active Substance: LEVETIRACETAM
     Route: 048

REACTIONS (4)
  - Toxic encephalopathy [None]
  - Diplopia [None]
  - Ataxia [None]
  - Cerebellar syndrome [None]
